FAERS Safety Report 17122066 (Version 1)
Quarter: 2019Q4

REPORT INFORMATION
  Report Type: Spontaneous
  Country: US (occurrence: US)
  Receive Date: 20191206
  Receipt Date: 20191206
  Transmission Date: 20200122
  Serious: No
  Sender: FDA-Public Use
  Company Number: US-AMGEN INC.-USASP2019202550

PATIENT
  Sex: Female

DRUGS (2)
  1. AIMOVIG [Suspect]
     Active Substance: ERENUMAB-AOOE
     Indication: MIGRAINE
     Dosage: 140 MILLIGRAM, QMO
     Route: 065
     Dates: start: 2019
  2. COQ10 [UBIDECARENONE] [Suspect]
     Active Substance: UBIDECARENONE
     Indication: BLOOD CREATINE PHOSPHOKINASE INCREASED
     Dosage: UNK
     Route: 065
     Dates: start: 2019

REACTIONS (2)
  - Blood creatine phosphokinase increased [Unknown]
  - Migraine [Unknown]

NARRATIVE: CASE EVENT DATE: 2019
